FAERS Safety Report 20929061 (Version 1)
Quarter: 2022Q2

REPORT INFORMATION
  Report Type: Report from Study
  Country: CA (occurrence: CA)
  Receive Date: 20220608
  Receipt Date: 20220608
  Transmission Date: 20220721
  Serious: Yes (Hospitalization)
  Sender: FDA-Public Use
  Company Number: CA-ABBVIE-22K-028-4424325-00

PATIENT
  Age: 21 Year
  Sex: Male

DRUGS (1)
  1. HUMIRA [Suspect]
     Active Substance: ADALIMUMAB
     Indication: Product used for unknown indication
     Route: 058
     Dates: start: 20170511

REACTIONS (3)
  - Mania [Unknown]
  - Condition aggravated [Unknown]
  - Insomnia [Unknown]

NARRATIVE: CASE EVENT DATE: 20220501
